FAERS Safety Report 22588579 (Version 1)
Quarter: 2023Q2

REPORT INFORMATION
  Report Type: Spontaneous
  Country: US (occurrence: US)
  Receive Date: 20230612
  Receipt Date: 20230612
  Transmission Date: 20230721
  Serious: Yes (Death, Other)
  Sender: FDA-Public Use
  Company Number: US-BRISTOL-MYERS SQUIBB COMPANY-2023-081696

PATIENT
  Age: 77 Year
  Sex: Female
  Weight: 71.214 kg

DRUGS (1)
  1. POMALYST [Suspect]
     Active Substance: POMALIDOMIDE
     Indication: Product used for unknown indication
     Dosage: DOSE : UNKNOWN, NOT PROVIDED;     FREQ : SEE NARRATIVE
     Route: 048

REACTIONS (1)
  - Death [Fatal]
